FAERS Safety Report 24876227 (Version 1)
Quarter: 2025Q1

REPORT INFORMATION
  Report Type: Spontaneous
  Country: US (occurrence: US)
  Receive Date: 20250123
  Receipt Date: 20250123
  Transmission Date: 20250409
  Serious: No
  Sender: AUROBINDO
  Company Number: US-AUROBINDO-AUR-APL-2024-029385

PATIENT
  Age: 36 Year
  Sex: Female
  Weight: 58.967 kg

DRUGS (1)
  1. PROGESTERONE [Suspect]
     Active Substance: PROGESTERONE
     Indication: In vitro fertilisation
     Dosage: UNK, ONCE A DAY
     Route: 030
     Dates: start: 20240517

REACTIONS (9)
  - Erythema [Unknown]
  - Muscle spasms [Unknown]
  - Paraesthesia [Unknown]
  - Swelling [Recovered/Resolved]
  - Pain [Recovered/Resolved]
  - Burning sensation [Recovering/Resolving]
  - Tenderness [Recovered/Resolved]
  - Product contamination physical [Unknown]
  - Product use complaint [Unknown]

NARRATIVE: CASE EVENT DATE: 20240603
